FAERS Safety Report 23491635 (Version 3)
Quarter: 2024Q2

REPORT INFORMATION
  Report Type: Spontaneous
  Country: US (occurrence: US)
  Receive Date: 20240207
  Receipt Date: 20240415
  Transmission Date: 20240716
  Serious: Yes (Other)
  Sender: FDA-Public Use
  Company Number: US-BRISTOL-MYERS SQUIBB COMPANY-2024-019414

PATIENT
  Age: 75 Year
  Sex: Female
  Weight: 46.27 kg

DRUGS (1)
  1. REVLIMID [Suspect]
     Active Substance: LENALIDOMIDE
     Indication: Plasma cell myeloma
     Dosage: DAILY FOR 21DAYS/DAILY FOR 21 DAYS ON, THEN 7 DAYS OFF
     Route: 048
     Dates: start: 20230808

REACTIONS (5)
  - Neuropathy peripheral [Unknown]
  - Dyspepsia [Unknown]
  - Arthralgia [Unknown]
  - Constipation [Unknown]
  - Abdominal pain upper [Unknown]
